FAERS Safety Report 11259126 (Version 6)
Quarter: 2016Q2

REPORT INFORMATION
  Report Type: Report from Study
  Country: JP (occurrence: JP)
  Receive Date: 20150710
  Receipt Date: 20160422
  Transmission Date: 20160815
  Serious: Yes (Death, Life-Threatening, Hospitalization, Other)
  Sender: FDA-Public Use
  Company Number: JP-PFIZER INC-2015228674

PATIENT
  Age: 76 Year
  Sex: Female
  Weight: 43 kg

DRUGS (23)
  1. CELECOX [Suspect]
     Active Substance: CELECOXIB
     Indication: RHEUMATOID ARTHRITIS
     Dosage: 200 MG, 1X/DAY
     Route: 048
     Dates: start: 20150520, end: 20150623
  2. BAKTAR [Suspect]
     Active Substance: SULFAMETHOXAZOLE\TRIMETHOPRIM
     Indication: PNEUMONIA
     Dosage: 2 DF, 3X/DAY
     Route: 048
     Dates: start: 20150629, end: 20150705
  3. CRAVIT [Concomitant]
     Active Substance: LEVOFLOXACIN
     Dosage: 500 MG, DAILY
     Route: 048
     Dates: start: 20150626, end: 20150629
  4. MEDROL [Concomitant]
     Active Substance: METHYLPREDNISOLONE
     Dosage: 6 MG, 1X/DAY
     Route: 048
     Dates: start: 2015
  5. PREDNISOLONE. [Concomitant]
     Active Substance: PREDNISOLONE
     Dosage: 20 MG, DAILY
     Route: 048
     Dates: start: 20150626, end: 20150628
  6. METHOTREXATE SODIUM. [Suspect]
     Active Substance: METHOTREXATE SODIUM
     Indication: RHEUMATOID ARTHRITIS
     Dosage: 6 MG, WEEKLY (ONCE WEEKLY, TWICE A DAY) (ORAL, 3 MG, TWICE DAILY)
     Route: 048
     Dates: start: 20150508, end: 20150522
  7. ISONARIF [Suspect]
     Active Substance: ISONIAZID\RIFAMPIN
     Indication: PROPHYLAXIS
     Dosage: 200 MG, 1X/DAY
     Route: 048
     Dates: start: 20150520, end: 20150623
  8. BONALON [Concomitant]
     Active Substance: ALENDRONATE SODIUM
     Dosage: UNK
     Route: 048
     Dates: start: 20150520, end: 20150623
  9. MEDROL [Concomitant]
     Active Substance: METHYLPREDNISOLONE
     Dosage: 8 G, 1X/DAY
     Route: 048
     Dates: start: 20150508, end: 20150625
  10. SOLU-MEDROL [Concomitant]
     Active Substance: METHYLPREDNISOLONE SODIUM SUCCINATE
     Dosage: 500 MG, 1X/DAY
     Dates: start: 20150629, end: 20150701
  11. CELECOX [Suspect]
     Active Substance: CELECOXIB
     Indication: OSTEOARTHRITIS
  12. CIMZIA [Suspect]
     Active Substance: CERTOLIZUMAB PEGOL
     Indication: RHEUMATOID ARTHRITIS
     Dosage: 400 MG, 2X/WEEK (EVERY 2 WEEKS)
     Route: 058
     Dates: start: 20150522, end: 20150629
  13. PLAVIX [Suspect]
     Active Substance: CLOPIDOGREL BISULFATE
     Indication: VASCULAR CALCIFICATION
     Dosage: 75 MG, 1X/DAY
     Route: 048
     Dates: start: 20150527, end: 20150623
  14. BENAMBAX [Suspect]
     Active Substance: PENTAMIDINE
     Indication: PNEUMONIA
     Dosage: 160 MG, 1X/DAY
     Route: 041
     Dates: start: 20150706, end: 20150706
  15. VASOLAN /00014302/ [Concomitant]
     Active Substance: VERAPAMIL HYDROCHLORIDE
     Dosage: UNK
     Route: 048
     Dates: start: 20150627
  16. VANCOMYCIN [Concomitant]
     Active Substance: VANCOMYCIN
     Dosage: 0.5 G, 2X/DAY
     Dates: start: 20150627, end: 20150629
  17. PREDONINE [Concomitant]
     Active Substance: PREDNISOLONE\PREDNISOLONE ACETATE\PREDNISOLONE SODIUM SUCCINATE
     Dosage: UNK
     Dates: start: 20150702, end: 20150711
  18. FAMOTIDINE. [Suspect]
     Active Substance: FAMOTIDINE
     Indication: PROPHYLAXIS
     Dosage: 40 MG, 1X/DAY
     Route: 048
     Dates: start: 20150508, end: 20150623
  19. BAKTAR [Suspect]
     Active Substance: SULFAMETHOXAZOLE\TRIMETHOPRIM
     Indication: PNEUMONIA
     Dosage: 1 G, 1X/DAY
     Route: 048
     Dates: start: 20150707, end: 20150711
  20. GAMMA GLOBULIN [Concomitant]
     Active Substance: IMMUNE GLOBULIN NOS
     Dosage: 5 G, DAILY
     Route: 048
     Dates: start: 20150627, end: 20150629
  21. BAKTAR [Suspect]
     Active Substance: SULFAMETHOXAZOLE\TRIMETHOPRIM
     Dosage: 1 DF, 1X/DAY
     Route: 048
     Dates: start: 20150706, end: 20150706
  22. MEROPEN /01250501/ [Concomitant]
     Active Substance: MEROPENEM
     Dosage: 3 G, DAILY
     Dates: start: 20150626, end: 20150702
  23. NEUTROGIN [Concomitant]
     Active Substance: LENOGRASTIM
     Dosage: UNK
     Route: 048
     Dates: start: 20150623, end: 20150628

REACTIONS (9)
  - White blood cell count decreased [Recovered/Resolved]
  - Hyponatraemia [Unknown]
  - Intentional product misuse [Unknown]
  - Interstitial lung disease [Fatal]
  - Hyperkalaemia [Unknown]
  - Pneumocystis jirovecii pneumonia [Fatal]
  - Liver disorder [Unknown]
  - Neutropenia [Recovered/Resolved]
  - Shock [Unknown]

NARRATIVE: CASE EVENT DATE: 201505
